FAERS Safety Report 8297878-0 (Version None)
Quarter: 2012Q2

REPORT INFORMATION
  Report Type: 
  Country: None (occurrence: None)
  Receive Date: 20120419
  Receipt Date: 20120417
  Transmission Date: 20120825
  Serious: Yes (Death, Hospitalization, Other)
  Sender: FDA-Public Use
  Company Number: PHHY2012BR032974

PATIENT
  Sex: Female

DRUGS (8)
  1. SLOW-K [Concomitant]
     Dosage: UNK UKN, UNK
  2. CARVEDILOL [Concomitant]
     Dosage: 6.25 MG, UNK
  3. ISORDIL [Concomitant]
     Dosage: 40 MG, UNK
  4. HIDRION [Concomitant]
  5. DIOVAN [Suspect]
     Indication: HYPERTENSION
     Dosage: 2 TABLETS (80 MG), DAILY
  6. SIMVASTATIN [Concomitant]
     Dosage: 20 MG, UNK
  7. PRANDIN [Concomitant]
  8. SEROQUEL [Concomitant]
     Dosage: 25 MG, UNK

REACTIONS (4)
  - DIABETIC COMPLICATION [None]
  - FEMUR FRACTURE [None]
  - CARDIAC DISORDER [None]
  - FALL [None]
